FAERS Safety Report 20609322 (Version 1)
Quarter: 2022Q1

REPORT INFORMATION
  Report Type: Report from Study
  Country: US (occurrence: US)
  Receive Date: 20220317
  Receipt Date: 20220317
  Transmission Date: 20220423
  Serious: Yes (Other)
  Sender: FDA-Public Use
  Company Number: US-UCBSA-2021061776

PATIENT
  Age: 43 Year
  Sex: Female
  Weight: 69.3 kg

DRUGS (5)
  1. LACOSAMIDE [Suspect]
     Active Substance: LACOSAMIDE
     Indication: Seizure
     Dosage: 200 MILLIGRAM, 2X/DAY (BID) AND ALSO TAKES 100MG
  2. LACOSAMIDE [Suspect]
     Active Substance: LACOSAMIDE
     Dosage: CUTTING HER MEDICATION AND USING MORE MEDICATION THAN ORIGINALLY PRESCRIBED
  3. LACOSAMIDE [Suspect]
     Active Substance: LACOSAMIDE
     Dosage: 250MG IN THE MORNING AND 300MG AT NIGHT
  4. INSULIN NOS [Concomitant]
     Active Substance: INSULIN NOS
     Indication: Type 1 diabetes mellitus
  5. SYNTHROID [Concomitant]
     Active Substance: LEVOTHYROXINE SODIUM
     Indication: Hypothyroidism

REACTIONS (9)
  - Seizure [Recovered/Resolved]
  - Surgery [Unknown]
  - Vagal nerve stimulator implantation [Not Recovered/Not Resolved]
  - Fatigue [Not Recovered/Not Resolved]
  - Disturbance in attention [Not Recovered/Not Resolved]
  - Off label use [Unknown]
  - Overdose [Unknown]
  - Intentional product use issue [Unknown]
  - Therapy interrupted [Unknown]

NARRATIVE: CASE EVENT DATE: 20211214
